FAERS Safety Report 15323776 (Version 1)
Quarter: 2018Q3

REPORT INFORMATION
  Report Type: Spontaneous
  Country: JP (occurrence: JP)
  Receive Date: 20180828
  Receipt Date: 20180828
  Transmission Date: 20181010
  Serious: Yes (Other)
  Sender: FDA-Public Use
  Company Number: JP-CONCORDIA PHARMACEUTICALS INC.-GSH201808-003080

PATIENT
  Age: 40 Year
  Sex: Female

DRUGS (21)
  1. PREDNISOLONE. [Suspect]
     Active Substance: PREDNISOLONE
     Indication: MYASTHENIA GRAVIS
     Dosage: DOSE TAPERED
  2. TS?1 [Suspect]
     Active Substance: GIMERACIL\OTERACIL\TEGAFUR
     Indication: THYMOMA
     Route: 048
  3. CISPLATIN. [Suspect]
     Active Substance: CISPLATIN
     Indication: MYASTHENIA GRAVIS
  4. TACROLIMUS. [Suspect]
     Active Substance: TACROLIMUS
     Indication: THYMOMA
     Dosage: LOW?DOSE
  5. DOXORUBICIN [Suspect]
     Active Substance: DOXORUBICIN
     Indication: MYASTHENIA GRAVIS
  6. VINCRISTINE SULFATE. [Suspect]
     Active Substance: VINCRISTINE SULFATE
     Indication: MYOTONIC DYSTROPHY
  7. CYCLOPHOSPHAMIDE. [Suspect]
     Active Substance: CYCLOPHOSPHAMIDE
     Indication: MYOTONIC DYSTROPHY
  8. TS?1 [Suspect]
     Active Substance: GIMERACIL\OTERACIL\TEGAFUR
     Indication: MYASTHENIA GRAVIS
  9. TS?1 [Suspect]
     Active Substance: GIMERACIL\OTERACIL\TEGAFUR
     Indication: MYOTONIC DYSTROPHY
  10. PREDNISOLONE. [Suspect]
     Active Substance: PREDNISOLONE
     Indication: THYMOMA
     Dosage: LOW?DOSE
  11. PREDNISOLONE. [Suspect]
     Active Substance: PREDNISOLONE
     Indication: MYOTONIC DYSTROPHY
  12. TACROLIMUS. [Suspect]
     Active Substance: TACROLIMUS
     Indication: MYOTONIC DYSTROPHY
  13. VINCRISTINE SULFATE. [Suspect]
     Active Substance: VINCRISTINE SULFATE
     Indication: THYMOMA
  14. CYCLOPHOSPHAMIDE. [Suspect]
     Active Substance: CYCLOPHOSPHAMIDE
     Indication: THYMOMA
  15. CISPLATIN. [Suspect]
     Active Substance: CISPLATIN
     Indication: THYMOMA
  16. VINCRISTINE SULFATE. [Suspect]
     Active Substance: VINCRISTINE SULFATE
     Indication: MYASTHENIA GRAVIS
  17. CYCLOPHOSPHAMIDE. [Suspect]
     Active Substance: CYCLOPHOSPHAMIDE
     Indication: MYASTHENIA GRAVIS
  18. CISPLATIN. [Suspect]
     Active Substance: CISPLATIN
     Indication: MYOTONIC DYSTROPHY
  19. TACROLIMUS. [Suspect]
     Active Substance: TACROLIMUS
     Indication: MYASTHENIA GRAVIS
     Dosage: DOSE TAPERED
  20. DOXORUBICIN [Suspect]
     Active Substance: DOXORUBICIN
     Indication: MYOTONIC DYSTROPHY
  21. DOXORUBICIN [Suspect]
     Active Substance: DOXORUBICIN
     Indication: THYMOMA

REACTIONS (2)
  - Aplasia pure red cell [Recovered/Resolved]
  - Drug effect incomplete [Unknown]
